FAERS Safety Report 8202728-4 (Version None)
Quarter: 2012Q1

REPORT INFORMATION
  Report Type: 
  Country: None (occurrence: None)
  Receive Date: 20120312
  Receipt Date: 20120306
  Transmission Date: 20120608
  Serious: Yes (Death)
  Sender: FDA-Public Use
  Company Number: US-CELGENEUS-163-21880-11093580

PATIENT
  Sex: Male
  Weight: 70 kg

DRUGS (5)
  1. REVLIMID [Suspect]
     Indication: MYELODYSPLASTIC SYNDROME
     Dosage: 10 MILLIGRAM
     Route: 048
     Dates: start: 20110705, end: 20111003
  2. HYDREA [Concomitant]
     Dosage: 500 MILLIGRAM
     Route: 048
  3. PREDNISONE [Concomitant]
     Dosage: 10 MILLIGRAM
     Route: 048
  4. REVLIMID [Suspect]
     Indication: MYELOFIBROSIS
  5. CASODEX [Concomitant]
     Indication: PROSTATE CANCER
     Dosage: 50 MILLIGRAM
     Route: 048

REACTIONS (4)
  - CONTUSION [None]
  - MYELODYSPLASTIC SYNDROME [None]
  - ACUTE MYELOID LEUKAEMIA [None]
  - DIARRHOEA [None]
